FAERS Safety Report 5405128-5 (Version None)
Quarter: 2007Q3

REPORT INFORMATION
  Report Type: 
  Country: None (occurrence: None)
  Receive Date: 20070730
  Receipt Date: 20070709
  Transmission Date: 20080115
  Serious: Yes (Other)
  Sender: FDA-Public Use
  Company Number: 6035576

PATIENT
  Age: 37 Year
  Sex: Male

DRUGS (3)
  1. AMLODIPINE [Suspect]
     Indication: DRUG USE FOR UNKNOWN INDICATION
     Dosage: 6, 7 MG/KG (6,7 MG/KG, 1 IN 1 ONCE
  2. ALPRAZOLAM [Suspect]
     Indication: DRUG USE FOR UNKNOWN INDICATION
     Dosage: 1 MG/KG
  3. ATENOLOL [Suspect]
     Indication: DRUG USE FOR UNKNOWN INDICATION
     Dosage: 33,3 MG/KG

REACTIONS (4)
  - ACIDOSIS [None]
  - BRADYCARDIA [None]
  - OVERDOSE [None]
  - SHOCK [None]
